FAERS Safety Report 24931708 (Version 1)
Quarter: 2025Q1

REPORT INFORMATION
  Report Type: Spontaneous
  Country: CH (occurrence: CH)
  Receive Date: 20250205
  Receipt Date: 20250205
  Transmission Date: 20250409
  Serious: No
  Sender: EXELIXIS
  Company Number: CH-BRISTOL-MYERS SQUIBB COMPANY-2024-098683

PATIENT
  Age: 72 Year

DRUGS (7)
  1. CABOMETYX [Suspect]
     Active Substance: CABOZANTINIB S-MALATE
     Indication: Metastatic renal cell carcinoma
  2. YERVOY [Suspect]
     Active Substance: IPILIMUMAB
     Indication: Metastatic renal cell carcinoma
     Dates: start: 20230328
  3. YERVOY [Suspect]
     Active Substance: IPILIMUMAB
     Dates: start: 20230413
  4. YERVOY [Suspect]
     Active Substance: IPILIMUMAB
     Dates: start: 20230508
  5. YERVOY [Suspect]
     Active Substance: IPILIMUMAB
     Dates: start: 20230601
  6. PEMBROLIZUMAB [Suspect]
     Active Substance: PEMBROLIZUMAB
     Indication: Metastatic renal cell carcinoma
  7. AXITINIB [Suspect]
     Active Substance: AXITINIB
     Indication: Metastatic renal cell carcinoma

REACTIONS (1)
  - Off label use [Unknown]
